FAERS Safety Report 5068402-0 (Version None)
Quarter: 2006Q3

REPORT INFORMATION
  Report Type: 
  Country: None (occurrence: None)
  Receive Date: 20060802
  Receipt Date: 20050913
  Transmission Date: 20061208
  Serious: Yes (Other)
  Sender: FDA-Public Use
  Company Number: US-BRISTOL-MYERS SQUIBB COMPANY-13109038

PATIENT
  Age: 71 Year
  Sex: Female
  Weight: 81 kg

DRUGS (5)
  1. COUMADIN [Suspect]
     Indication: THROMBOSIS
     Dosage: START 2YRS AGO QD; DOSE ADJUSTED TO BLOOD RESULTS; 8/18: 5MG QD X 14 DAYS; 9/13: OMIT RX X 3 DAYS
     Route: 048
  2. NORVASC [Concomitant]
  3. HYZAAR [Concomitant]
  4. ZOLOFT [Concomitant]
  5. KLONOPIN [Concomitant]

REACTIONS (2)
  - INTERNATIONAL NORMALISED RATIO INCREASED [None]
  - PROTHROMBIN TIME PROLONGED [None]
